FAERS Safety Report 6036460-2 (Version None)
Quarter: 2009Q1

REPORT INFORMATION
  Report Type: 
  Country: None (occurrence: None)
  Receive Date: 20090112
  Receipt Date: 20081228
  Transmission Date: 20090719
  Serious: Yes (Other)
  Sender: FDA-Public Use
  Company Number: CHPA2008US23558

PATIENT
  Age: 15 Year
  Sex: Male

DRUGS (2)
  1. GAS-X ULTRA STRENGTH (NCH) (SIMETHICONE) SOFT GELATIN CAPSULE [Suspect]
     Indication: FLATULENCE
     Dosage: 360 MG, ONCE/SINGLE, ORAL
     Route: 048
     Dates: start: 20081228, end: 20081228
  2. DRUG THREAPY NOS (DRUG THERAPY NOS) [Concomitant]

REACTIONS (2)
  - APPENDICECTOMY [None]
  - OVERDOSE [None]
